FAERS Safety Report 20227250 (Version 1)
Quarter: 2021Q4

REPORT INFORMATION
  Report Type: Spontaneous
  Country: US (occurrence: US)
  Receive Date: 20211224
  Receipt Date: 20211224
  Transmission Date: 20220303
  Serious: No
  Sender: FDA-Public Use
  Company Number: US-BIOCODEX2-2021001381

PATIENT

DRUGS (7)
  1. DIACOMIT [Suspect]
     Active Substance: STIRIPENTOL
     Indication: Epilepsy
     Dosage: 250 MG, TWICE A DAY
     Route: 065
     Dates: start: 20210714
  2. DIACOMIT [Suspect]
     Active Substance: STIRIPENTOL
     Indication: Lennox-Gastaut syndrome
  3. DIACOMIT [Suspect]
     Active Substance: STIRIPENTOL
     Indication: Seizure
  4. BANZEL [Concomitant]
     Active Substance: RUFINAMIDE
     Indication: Product used for unknown indication
     Route: 065
  5. DILANTIN [Concomitant]
     Active Substance: PHENYTOIN
     Indication: Product used for unknown indication
     Route: 065
  6. KEPPRA [Concomitant]
     Active Substance: LEVETIRACETAM
     Indication: Product used for unknown indication
     Route: 065
  7. ONFI [Concomitant]
     Active Substance: CLOBAZAM
     Indication: Product used for unknown indication
     Route: 065

REACTIONS (2)
  - Somnolence [Unknown]
  - Product use in unapproved indication [Unknown]
